FAERS Safety Report 7356344-7 (Version None)
Quarter: 2011Q1

REPORT INFORMATION
  Report Type: 
  Country: None (occurrence: None)
  Receive Date: 20110316
  Receipt Date: 20110309
  Transmission Date: 20110831
  Serious: Yes (Hospitalization, Other)
  Sender: FDA-Public Use
  Company Number: US-ELI_LILLY_AND_COMPANY-US201009003632

PATIENT
  Sex: Female

DRUGS (16)
  1. BENICAR HCT [Concomitant]
     Dosage: UNK, DAILY (1/D)
  2. NASONEX [Concomitant]
     Dosage: UNK, UNKNOWN
     Route: 065
  3. PANTOPRAZOLE [Concomitant]
     Indication: DYSPEPSIA
     Dosage: 40 MG, 2/D
  4. FORTEO [Suspect]
     Indication: OSTEOPOROSIS
     Dosage: 20 UG, DAILY (1/D)
     Dates: start: 20100801, end: 20100823
  5. MUCINEX [Concomitant]
     Dosage: UNK, UNKNOWN
     Route: 065
  6. BUPROPION [Concomitant]
     Dosage: 300 MG, DAILY (1/D)
  7. XANAX [Concomitant]
     Dosage: 0.5 MG, 3/D
  8. CALCIUM [Concomitant]
     Dosage: UNK, UNKNOWN
     Route: 065
  9. SYMBICORT [Concomitant]
     Dosage: UNK, DAILY (1/D)
     Route: 045
  10. FORTEO [Suspect]
     Dosage: 20 UG, DAILY (1/D)
  11. WELLBUTRIN [Concomitant]
     Dosage: UNK, UNKNOWN
     Route: 065
  12. VITAMIN D [Concomitant]
     Dosage: 2000 D/F, UNK
  13. FLUTICASONE PROPIONATE [Concomitant]
     Dosage: UNK, DAILY (1/D)
     Route: 045
  14. PERCOCET [Concomitant]
     Dosage: UNK, AS NEEDED
  15. ANTIVERT /00072802/ [Concomitant]
     Indication: DIZZINESS
     Dosage: UNK, AS NEEDED
  16. LEXAPRO [Concomitant]
     Dosage: 10 MG, DAILY (1/D)

REACTIONS (8)
  - HIATUS HERNIA [None]
  - PNEUMONIA [None]
  - INJECTION SITE PAIN [None]
  - ROAD TRAFFIC ACCIDENT [None]
  - PROCEDURAL PAIN [None]
  - ARTHRALGIA [None]
  - BRONCHITIS [None]
  - JOINT INJURY [None]
